FAERS Safety Report 8029365-9 (Version None)
Quarter: 2012Q1

REPORT INFORMATION
  Report Type: 
  Country: None (occurrence: None)
  Receive Date: 20120106
  Receipt Date: 20111230
  Transmission Date: 20120608
  Serious: Yes (Other)
  Sender: FDA-Public Use
  Company Number: US-AMGEN-USASP2011069651

PATIENT
  Age: 90 Year
  Sex: Female

DRUGS (3)
  1. PARKINSON MEDICATION [Concomitant]
     Indication: PARKINSON'S DISEASE
     Dosage: UNK
  2. PROLIA [Suspect]
     Indication: OSTEOPOROSIS POSTMENOPAUSAL
     Dosage: UNK UNK, Q6MO
     Dates: start: 20111217
  3. THYROID MEDICATION [Concomitant]
     Indication: THYROID THERAPY
     Dosage: UNK

REACTIONS (2)
  - DYSSTASIA [None]
  - MUSCULAR WEAKNESS [None]
